FAERS Safety Report 14105926 (Version 1)
Quarter: 2017Q4

REPORT INFORMATION
  Report Type: Spontaneous
  Country: US (occurrence: US)
  Receive Date: 20171018
  Receipt Date: 20171018
  Transmission Date: 20180321
  Serious: No
  Sender: FDA-Public Use
  Company Number: US-AMGEN-USASP2016144334

PATIENT
  Age: 86 Year
  Sex: Female

DRUGS (6)
  1. PROLIA [Suspect]
     Active Substance: DENOSUMAB
     Indication: OSTEOPOROSIS POSTMENOPAUSAL
     Dosage: UNK
     Route: 065
     Dates: start: 20160923
  2. ASPIRIN 81 [Concomitant]
     Active Substance: ASPIRIN
     Indication: MYOCARDIAL INFARCTION
     Dosage: 81 MG, UNK
  3. VITAMIN D [Concomitant]
     Active Substance: CHOLECALCIFEROL
     Dosage: 400 IU, UNK
  4. METOPROLOL. [Concomitant]
     Active Substance: METOPROLOL
     Dosage: 25 MG, QD
  5. SIMVASTATIN. [Concomitant]
     Active Substance: SIMVASTATIN
     Dosage: 40 MG, QD
  6. CALCIUM [Concomitant]
     Active Substance: CALCIUM
     Dosage: 600 MG, BID

REACTIONS (5)
  - Back pain [Not Recovered/Not Resolved]
  - Muscle spasms [Unknown]
  - Lip swelling [Unknown]
  - Pollakiuria [Unknown]
  - Paraesthesia [Unknown]

NARRATIVE: CASE EVENT DATE: 201610
